FAERS Safety Report 9475030 (Version 1)
Quarter: 2013Q3

REPORT INFORMATION
  Report Type: Spontaneous
  Country: US (occurrence: None)
  Receive Date: 20130822
  Receipt Date: 20130822
  Transmission Date: 20140515
  Serious: Yes (Disabling, Other)
  Sender: FDA-Public Use
  Company Number: None

PATIENT
  Age: 42 Year
  Sex: Female
  Weight: 76.2 kg

DRUGS (3)
  1. BOTOX [Suspect]
     Indication: SKIN WRINKLING
     Dates: start: 20130314, end: 20130314
  2. LEVOTHVROXINE [Concomitant]
  3. ADVIL [Concomitant]

REACTIONS (19)
  - Sensory disturbance [None]
  - Vomiting [None]
  - Anxiety [None]
  - Throat tightness [None]
  - Cardiac disorder [None]
  - Convulsion [None]
  - Blindness transient [None]
  - Syncope [None]
  - Inflammation [None]
  - Paralysis [None]
  - Asthenia [None]
  - Dizziness [None]
  - Disturbance in attention [None]
  - Muscle spasms [None]
  - Visual impairment [None]
  - Dyspnoea [None]
  - Weight decreased [None]
  - Eating disorder [None]
  - Hypoaesthesia [None]
